FAERS Safety Report 23603542 (Version 1)
Quarter: 2024Q1

REPORT INFORMATION
  Report Type: Spontaneous
  Country: US (occurrence: US)
  Receive Date: 20240307
  Receipt Date: 20240307
  Transmission Date: 20240410
  Serious: Yes (Hospitalization, Other)
  Sender: FDA-Public Use
  Company Number: US-AMGEN-USASP2024043570

PATIENT

DRUGS (1)
  1. FILGRASTIM [Suspect]
     Active Substance: FILGRASTIM
     Indication: Haematopoietic stem cell mobilisation
     Dosage: UNK
     Route: 065

REACTIONS (5)
  - Enterobacter bacteraemia [Unknown]
  - Febrile neutropenia [Unknown]
  - Clostridium difficile colitis [Unknown]
  - Engraftment syndrome [Unknown]
  - Pyrexia [Unknown]
